FAERS Safety Report 17151009 (Version 1)
Quarter: 2019Q4

REPORT INFORMATION
  Report Type: Spontaneous
  Country: EG (occurrence: EG)
  Receive Date: 20191213
  Receipt Date: 20191213
  Transmission Date: 20200122
  Serious: Yes (Other)
  Sender: FDA-Public Use
  Company Number: EG-GLAXOSMITHKLINE-EG2019GSK209428

PATIENT
  Age: 60 Year
  Sex: Female

DRUGS (1)
  1. DICLOFENAC SODIUM. [Suspect]
     Active Substance: DICLOFENAC SODIUM
     Indication: PRODUCT USED FOR UNKNOWN INDICATION
     Dosage: UNK
     Route: 030

REACTIONS (9)
  - Gangrene [Unknown]
  - Injection site pain [Unknown]
  - Injection site necrosis [Unknown]
  - Injection site erosion [Unknown]
  - Injection site erythema [Unknown]
  - Drug administered in wrong device [Unknown]
  - Embolia cutis medicamentosa [Unknown]
  - Lividity [Unknown]
  - Injection site ulcer [Unknown]
